FAERS Safety Report 7671191-4 (Version None)
Quarter: 2011Q3

REPORT INFORMATION
  Report Type: 
  Country: None (occurrence: None)
  Receive Date: 20110803
  Receipt Date: 20110721
  Transmission Date: 20111222
  Serious: Yes (Death)
  Sender: FDA-Public Use
  Company Number: FK201101464

PATIENT
  Age: 67 Year
  Sex: Male
  Weight: 76.4 kg

DRUGS (7)
  1. OMEPRAZOLE [Concomitant]
  2. LOPERAMIDE (LOPERAMIDE) (LOPERAMIDE) [Concomitant]
  3. CYCLIZINE (CYCLIZINE) (CYCLIZINE) [Concomitant]
  4. METOCHLOPRAMIDE (METOCLOPRAMIDE HYDROCHLORIDE) (METOCLOPRAMIDE HYDROCH [Concomitant]
  5. OXALIPLATIN [Suspect]
     Indication: RECTAL CANCER METASTATIC
     Dosage: 250 MG, 1 IN 3 WK, INTRAVENOUS (NOT OTHERWISE SPECIFIED)
     Route: 042
     Dates: start: 20110118, end: 20110208
  6. XELODA [Suspect]
     Indication: RECTAL CANCER METASTATIC
     Dosage: 1930 MG, 1 IN 3 WK, ORAL
     Route: 048
     Dates: start: 20110118, end: 20110208
  7. AVASTIN [Suspect]
     Indication: RECTAL CANCER METASTATIC
     Dosage: 635 MG, 1 IN 3 WK, INTRAVENOUS (NOT OTHERWISE SPECIFIED)
     Route: 042
     Dates: start: 20110118, end: 20110208

REACTIONS (2)
  - RECTAL CANCER RECURRENT [None]
  - FISTULA [None]
